FAERS Safety Report 16682391 (Version 3)
Quarter: 2019Q3

REPORT INFORMATION
  Report Type: Spontaneous
  Country: BE (occurrence: BE)
  Receive Date: 20190808
  Receipt Date: 20190830
  Transmission Date: 20191004
  Serious: Yes (Hospitalization, Other)
  Sender: FDA-Public Use
  Company Number: BE-PFIZER INC-2019338121

PATIENT
  Age: 54 Year
  Sex: Female

DRUGS (2)
  1. INFLIXIMAB HOSPIRA [Suspect]
     Active Substance: INFLIXIMAB
     Indication: CROHN^S DISEASE
     Dosage: 5 MG/KG, MONTHLY (EVERY 4 WEEKS (BASED ONTROUGH 1335 LEVELS) FOR SEVERAL YEARS)
     Route: 065
  2. AZATHIOPRINE. [Suspect]
     Active Substance: AZATHIOPRINE
     Indication: CROHN^S DISEASE
     Dosage: 2.5 MG/KG, 1X/DAY

REACTIONS (3)
  - Cellulitis [Recovered/Resolved]
  - Campylobacter infection [Recovered/Resolved]
  - Off label use [Unknown]
